FAERS Safety Report 7968123-8 (Version None)
Quarter: 2011Q4

REPORT INFORMATION
  Report Type: 
  Country: None (occurrence: None)
  Receive Date: 20111207
  Receipt Date: 20111123
  Transmission Date: 20120403
  Serious: Yes (Other)
  Sender: FDA-Public Use
  Company Number: 2011AP002648

PATIENT
  Age: 70 Year
  Sex: Female

DRUGS (5)
  1. SULPHADIMIDINE (SULFADIMIDINE) [Concomitant]
  2. LOSARTAN POTASSIUM [Suspect]
     Indication: HYPERTENSION
     Dosage: 25 MG;PO
     Route: 048
     Dates: start: 20110907
  3. VERAPAMIL [Suspect]
     Indication: ATRIAL FIBRILLATION
  4. MEPERIDINE HYDROCHLORIDE [Concomitant]
  5. LISINOPRIL [Suspect]
     Indication: HYPERTENSION
     Dosage: 10 MG;PO
     Route: 048
     Dates: start: 20110805, end: 20110907

REACTIONS (20)
  - ABDOMINAL PAIN [None]
  - DIARRHOEA [None]
  - WALKING AID USER [None]
  - DRUG HYPERSENSITIVITY [None]
  - SLEEP DISORDER [None]
  - COUGH [None]
  - MUSCLE SPASMS [None]
  - URINARY INCONTINENCE [None]
  - OROPHARYNGEAL PAIN [None]
  - RASH ERYTHEMATOUS [None]
  - DRY EYE [None]
  - FIBROMYALGIA [None]
  - DRY MOUTH [None]
  - HYPERSENSITIVITY [None]
  - ARTHRALGIA [None]
  - DECREASED APPETITE [None]
  - PHARYNGEAL OEDEMA [None]
  - GASTROINTESTINAL TRACT IRRITATION [None]
  - MUSCULOSKELETAL PAIN [None]
  - GASTROINTESTINAL PAIN [None]
